FAERS Safety Report 5776883-X (Version None)
Quarter: 2008Q2

REPORT INFORMATION
  Report Type: 
  Country: None (occurrence: None)
  Receive Date: 20080618
  Receipt Date: 20080611
  Transmission Date: 20081010
  Serious: Yes (Hospitalization)
  Sender: FDA-Public Use
  Company Number: A0715286A

PATIENT
  Age: 63 Year
  Sex: Female

DRUGS (9)
  1. LAMICTAL [Suspect]
     Indication: DEPRESSION
     Dosage: 50MG UNKNOWN
     Route: 048
     Dates: start: 20080115, end: 20080219
  2. PREVACID [Concomitant]
     Dosage: 30MG PER DAY
     Route: 048
  3. VIVELLE [Concomitant]
  4. ADVAIR DISKUS 100/50 [Concomitant]
  5. BENICAR [Concomitant]
  6. ZANTAC [Concomitant]
  7. LORAZEPAM [Concomitant]
  8. MAGIC MOUTHWASH [Concomitant]
  9. WELLBUTRIN [Concomitant]
     Dosage: 150MG PER DAY
     Route: 048

REACTIONS (22)
  - ACTINIC KERATOSIS [None]
  - COLLAGEN-VASCULAR DISEASE [None]
  - DRUG HYPERSENSITIVITY [None]
  - DRUG RASH WITH EOSINOPHILIA AND SYSTEMIC SYMPTOMS [None]
  - DRY EYE [None]
  - DYSHIDROSIS [None]
  - ERYTHEMA [None]
  - ERYTHEMA MULTIFORME [None]
  - LEUKOCYTOCLASTIC VASCULITIS [None]
  - LUNG INJURY [None]
  - LYMPHADENOPATHY [None]
  - MOUTH ULCERATION [None]
  - OEDEMA [None]
  - OESOPHAGITIS [None]
  - PARAESTHESIA [None]
  - PHOTODERMATOSIS [None]
  - PURPURA [None]
  - RESPIRATION ABNORMAL [None]
  - ROSACEA [None]
  - SEBORRHOEIC KERATOSIS [None]
  - SKIN EXFOLIATION [None]
  - SOLAR ELASTOSIS [None]
